FAERS Safety Report 13435349 (Version 2)
Quarter: 2017Q2

REPORT INFORMATION
  Report Type: Spontaneous
  Country: DK (occurrence: DK)
  Receive Date: 20170413
  Receipt Date: 20170427
  Transmission Date: 20170830
  Serious: Yes (Hospitalization)
  Sender: FDA-Public Use
  Company Number: DK-TEVA-756327ACC

PATIENT
  Age: 44 Year
  Sex: Female
  Weight: 136.5 kg

DRUGS (4)
  1. EMTHEXATE [Suspect]
     Active Substance: METHOTREXATE
     Indication: PSORIASIS
     Route: 048
     Dates: start: 2007, end: 20161020
  2. SUMATRIPTAN ^AMNEAL^ [Concomitant]
     Indication: MIGRAINE
  3. PANTOLOC [Concomitant]
     Active Substance: PANTOPRAZOLE SODIUM
     Indication: PRODUCT USED FOR UNKNOWN INDICATION
  4. FOLIMET [Concomitant]
     Indication: PROPHYLAXIS

REACTIONS (7)
  - Presyncope [Recovering/Resolving]
  - Fatigue [Recovering/Resolving]
  - Anaemia [Recovered/Resolved]
  - Blood folate decreased [Unknown]
  - Vitamin B12 decreased [Unknown]
  - Nausea [Recovering/Resolving]
  - Dizziness [Recovering/Resolving]

NARRATIVE: CASE EVENT DATE: 201610
